FAERS Safety Report 23132084 (Version 2)
Quarter: 2023Q4

REPORT INFORMATION
  Report Type: Report from Study
  Country: US (occurrence: US)
  Receive Date: 20231101
  Receipt Date: 20231101
  Transmission Date: 20240110
  Serious: Yes (Other)
  Sender: FDA-Public Use
  Company Number: US-TRAVERE-2023TVT00084

PATIENT
  Age: 27 Year
  Sex: Male
  Weight: 119 kg

DRUGS (9)
  1. SPARSENTAN [Suspect]
     Active Substance: SPARSENTAN
     Indication: IgA nephropathy
     Dosage: 200 MG RE-021 OR 150 MG IRBESARTAN
     Route: 048
     Dates: start: 20210511, end: 20210523
  2. SPARSENTAN [Suspect]
     Active Substance: SPARSENTAN
     Dosage: 400 MG RE-021 OR 300 MG IRBESARTAN
     Route: 048
     Dates: start: 20210524, end: 20230311
  3. ATORVASTATIN [Concomitant]
     Active Substance: ATORVASTATIN
  4. ALLOPURINOL [Concomitant]
     Active Substance: ALLOPURINOL
  5. FISH OIL [Concomitant]
     Active Substance: FISH OIL
  6. BROMELINE (ENZYME) [Concomitant]
  7. VITAMIN D [Concomitant]
     Active Substance: VITAMIN D NOS
  8. VITAMIN C [Concomitant]
     Active Substance: ASCORBIC ACID
  9. ZINC [Concomitant]
     Active Substance: PYRITHIONE ZINC\ZINC\ZINC CHLORIDE

REACTIONS (1)
  - Rhabdomyolysis [Recovered/Resolved]

NARRATIVE: CASE EVENT DATE: 20230309
